FAERS Safety Report 19855329 (Version 1)
Quarter: 2021Q3

REPORT INFORMATION
  Report Type: Spontaneous
  Country: US (occurrence: US)
  Receive Date: 20210917
  Receipt Date: 20210917
  Transmission Date: 20211014
  Serious: Yes (Hospitalization)
  Sender: FDA-Public Use
  Company Number: None

PATIENT
  Sex: Female

DRUGS (3)
  1. HUMIRA [Suspect]
     Active Substance: ADALIMUMAB
     Indication: CROHN^S DISEASE
     Dosage: ?          OTHER DOSE:1 PEN;OTHER FREQUENCY:EVERY 14 DAYS;?
     Route: 058
     Dates: start: 20180626
  2. MESALAMINE. [Concomitant]
     Active Substance: MESALAMINE
  3. FERROUS SULF [Concomitant]
     Active Substance: FERROUS SULFATE

REACTIONS (3)
  - Therapy interrupted [None]
  - Condition aggravated [None]
  - Aortic valve disease [None]
